FAERS Safety Report 18667836 (Version 2)
Quarter: 2021Q1

REPORT INFORMATION
  Report Type: Spontaneous
  Country: CN (occurrence: CN)
  Receive Date: 20201228
  Receipt Date: 20210112
  Transmission Date: 20210419
  Serious: Yes (Hospitalization, Other)
  Sender: FDA-Public Use
  Company Number: CN-ACCORD-212332

PATIENT
  Age: 37 Year
  Sex: Male

DRUGS (3)
  1. METHYLPREDNISOLONE. [Suspect]
     Active Substance: METHYLPREDNISOLONE
     Indication: IMMUNOSUPPRESSION
     Dosage: ONCE A DAY
     Route: 048
     Dates: start: 201703, end: 201903
  2. VORICONAZOLE. [Concomitant]
     Active Substance: VORICONAZOLE
     Dosage: EVERY 12 H
     Route: 048
  3. MYCOPHENOLIC ACID. [Suspect]
     Active Substance: MYCOPHENOLIC ACID
     Indication: IMMUNOSUPPRESSION
     Dosage: TWICE A DAY
     Route: 048
     Dates: start: 201703, end: 201903

REACTIONS (5)
  - Seizure [Recovered/Resolved]
  - Aspergillus infection [Recovered/Resolved]
  - Hiccups [Recovered/Resolved]
  - Pyrexia [Recovered/Resolved]
  - Carotid artery occlusion [Recovered/Resolved]

NARRATIVE: CASE EVENT DATE: 201902
